FAERS Safety Report 9372108 (Version 3)
Quarter: 2020Q2

REPORT INFORMATION
  Report Type: Report from Study
  Country: US (occurrence: US)
  Receive Date: 20130627
  Receipt Date: 20200529
  Transmission Date: 20200714
  Serious: No
  Sender: FDA-Public Use
  Company Number: US-ALEXION-A201301450

PATIENT
  Sex: Female

DRUGS (1)
  1. SOLIRIS [Suspect]
     Active Substance: ECULIZUMAB
     Indication: HAEMOLYTIC URAEMIC SYNDROME
     Dosage: UNK
     Route: 042

REACTIONS (7)
  - Malaise [Unknown]
  - Nausea [Unknown]
  - Fatigue [Unknown]
  - Biopsy lip [Unknown]
  - Vomiting [Unknown]
  - Haemoglobin decreased [Unknown]
  - Biopsy skin [Unknown]
